FAERS Safety Report 19634626 (Version 2)
Quarter: 2023Q4

REPORT INFORMATION
  Report Type: Report from Study
  Country: AT (occurrence: AT)
  Receive Date: 20210730
  Receipt Date: 20231103
  Transmission Date: 20240110
  Serious: Yes (Hospitalization)
  Sender: FDA-Public Use
  Company Number: AT-CELLTRION HEALTHCARE HUNGARY KFT-2019AT028758

PATIENT
  Age: 78 Year
  Sex: Female
  Weight: 58 kg

DRUGS (28)
  1. TRASTUZUMAB [Suspect]
     Active Substance: TRASTUZUMAB
     Indication: Breast cancer metastatic
     Dosage: 464 MG, EVERY 3 WEEKS (MOST RECENT DOSE PRIOR TO THE EVENT: 21/SEP/2018)
     Route: 042
     Dates: start: 20180810, end: 20180810
  2. TRASTUZUMAB [Suspect]
     Active Substance: TRASTUZUMAB
     Dosage: 336 MILLIGRAM, Q3WK / LAST ADMINISTRATION: 06/NOV/2018
     Route: 042
     Dates: start: 20180921
  3. DENOSUMAB [Suspect]
     Active Substance: DENOSUMAB
     Indication: HER2 positive breast cancer
     Dosage: 120 MILLIGRAM, Q4WK
     Route: 058
     Dates: start: 20181012
  4. PERTUZUMAB [Suspect]
     Active Substance: PERTUZUMAB
     Indication: Breast cancer metastatic
     Dosage: 840 MILLIGRAM, Q3WK
     Route: 042
     Dates: start: 20180810, end: 20180810
  5. PERTUZUMAB [Suspect]
     Active Substance: PERTUZUMAB
     Dosage: 420 MILLIGRAM, Q3WK/ LAST DSOE ADMINISTERED: 1-FEB-2019
     Route: 042
     Dates: start: 20180921
  6. PACLITAXEL [Suspect]
     Active Substance: PACLITAXEL
     Indication: Breast cancer metastatic
     Dosage: 129.61 MILLIGRAM, QWK
     Route: 058
     Dates: start: 20180810, end: 20180824
  7. PACLITAXEL [Suspect]
     Active Substance: PACLITAXEL
     Dosage: 279.32 MILLIGRAM, QWK
     Route: 042
     Dates: start: 20180921, end: 20180921
  8. PACLITAXEL [Suspect]
     Active Substance: PACLITAXEL
     Dosage: 127.69 MILLIGRAM, QWK
     Route: 065
     Dates: start: 20180928, end: 20181019
  9. PACLITAXEL [Suspect]
     Active Substance: PACLITAXEL
     Dosage: UNK
     Route: 065
  10. LETROZOLE [Suspect]
     Active Substance: LETROZOLE
     Indication: Breast cancer metastatic
     Dosage: 2.5 MILLIGRAM, QD
     Route: 048
     Dates: start: 20181029
  11. HERCEPTIN [Suspect]
     Active Substance: TRASTUZUMAB
     Indication: Breast cancer
     Dosage: 464 MILLIGRAM, Q3WK, MOST RECENT DOSE PRIOR TO THE EVENT: 21/SEP/2021
     Route: 042
     Dates: start: 20180810
  12. DEXABENE [Concomitant]
     Dosage: 20 MILLIGRAM, QWK
     Dates: start: 20180810, end: 20181019
  13. LISINOPRIL [Concomitant]
     Active Substance: LISINOPRIL
     Dosage: 20 MILLIGRAM, QD
  14. RANITIDINE HYDROCHLORIDE [Concomitant]
     Active Substance: RANITIDINE HYDROCHLORIDE
     Dosage: 4 MILLIGRAM
     Dates: start: 20180810, end: 20181019
  15. METOPROLOL [Concomitant]
     Active Substance: METOPROLOL
     Dosage: 4.75 MILLIGRAM, QD
  16. KYTRIL [Concomitant]
     Active Substance: GRANISETRON HYDROCHLORIDE
     Dosage: 3 MILLIGRAM
     Dates: start: 20180810, end: 20181019
  17. FENAKUT [Concomitant]
     Dosage: 3 MILLIGRAM, QWK
     Dates: start: 20180810
  18. ASPIRIN [Concomitant]
     Active Substance: ASPIRIN
     Dosage: 100 MILLIGRAM, QD
     Dates: start: 20181012
  19. AMLODIPINE [Concomitant]
     Active Substance: AMLODIPINE BESYLATE
     Dosage: 5 MILLIGRAM
     Dates: start: 201812
  20. VITAMINS WITH MINERALS [Concomitant]
     Active Substance: MINERALS\VITAMINS
     Dosage: UNK
     Dates: start: 20181029
  21. RIVASTIGMINE [Concomitant]
     Active Substance: RIVASTIGMINE
     Dosage: UNK
  22. GLUCOPHAGE [Concomitant]
     Active Substance: METFORMIN HYDROCHLORIDE
     Indication: Diabetes mellitus
     Dosage: 500 MILLIGRAM
  23. LEVOCETIRIZINE DIHYDROCHLORIDE [Concomitant]
     Active Substance: LEVOCETIRIZINE DIHYDROCHLORIDE
     Dosage: 5 MILLIGRAM
  24. DEXAGENTA [Concomitant]
     Dosage: UNK
  25. Kalioral [Concomitant]
     Dosage: UNK
  26. CIPRALEX [Concomitant]
     Active Substance: ESCITALOPRAM OXALATE
     Dosage: 5 MILLIGRAM, QD
     Dates: start: 201901
  27. PANTOPRAZOLE SODIUM [Concomitant]
     Active Substance: PANTOPRAZOLE SODIUM
     Dosage: 40 MILLIGRAM
  28. CALCIUM CARBONATE\CHOLECALCIFEROL [Concomitant]
     Active Substance: CALCIUM CARBONATE\CHOLECALCIFEROL
     Dosage: UNK
     Dates: start: 20191230

REACTIONS (7)
  - Epistaxis [Recovered/Resolved]
  - Lymphoedema [Recovered/Resolved]
  - Oedema peripheral [Recovered/Resolved]
  - Fatigue [Recovered/Resolved]
  - Anaemia [Recovered/Resolved]
  - Nausea [Recovered/Resolved]
  - Underdose [Unknown]

NARRATIVE: CASE EVENT DATE: 20180928
